FAERS Safety Report 20622450 (Version 1)
Quarter: 2022Q1

REPORT INFORMATION
  Report Type: Spontaneous
  Country: US (occurrence: US)
  Receive Date: 20220322
  Receipt Date: 20220322
  Transmission Date: 20220424
  Serious: No
  Sender: FDA-Public Use
  Company Number: US-ALLERGAN-2139160US

PATIENT
  Sex: Female

DRUGS (1)
  1. LUMIGAN [Suspect]
     Active Substance: BIMATOPROST
     Indication: Glaucoma
     Dosage: 2 GTT, QHS

REACTIONS (5)
  - Off label use [Unknown]
  - Product use complaint [Unknown]
  - Product dose omission issue [Unknown]
  - Burning sensation [Recovered/Resolved]
  - Product packaging quantity issue [Unknown]
